FAERS Safety Report 8738950 (Version 2)
Quarter: 2012Q4

REPORT INFORMATION
  Report Type: 
  Country: JP (occurrence: JP)
  Receive Date: 20120823
  Receipt Date: 20120907
  Transmission Date: 20130627
  Serious: Yes (Other)
  Sender: FDA-Public Use
  Company Number: JP-PFIZER INC-2012204647

PATIENT
  Age: 53 Year
  Sex: Male

DRUGS (1)
  1. HEPARIN SODIUM [Suspect]
     Dosage: UNK
     Route: 051

REACTIONS (2)
  - Heparin-induced thrombocytopenia [Recovered/Resolved]
  - Coronary artery thrombosis [Unknown]
